FAERS Safety Report 9171156 (Version 2)
Quarter: 2013Q1

REPORT INFORMATION
  Report Type: Spontaneous
  Country: US (occurrence: None)
  Receive Date: 20130312
  Receipt Date: 20130322
  Transmission Date: 20140127
  Serious: Yes (Other)
  Sender: FDA-Public Use
  Company Number: 2013P1002635

PATIENT
  Age: 63 Year
  Sex: Female
  Weight: 58.97 kg

DRUGS (3)
  1. AZO YEAST TABLETS 5X [Suspect]
     Indication: FUNGAL INFECTION
     Route: 048
     Dates: start: 201301, end: 201301
  2. AZO YEAST TABLETS 5X [Suspect]
     Indication: PROPHYLAXIS
     Route: 048
     Dates: start: 201301, end: 201301
  3. HYDROCODONE [Concomitant]

REACTIONS (4)
  - Convulsion [None]
  - Memory impairment [None]
  - Palpitations [None]
  - Extrasystoles [None]
